FAERS Safety Report 8775367 (Version 1)
Quarter: 2012Q4

REPORT INFORMATION
  Report Type: 
  Country: US (occurrence: US)
  Receive Date: 20120910
  Receipt Date: 20120910
  Transmission Date: 20130627
  Serious: Yes (Other)
  Sender: FDA-Public Use
  Company Number: US-ASTRAZENECA-2012SE69203

PATIENT
  Sex: Female

DRUGS (2)
  1. SEROQUEL XR [Suspect]
     Route: 048
  2. CLONAZEPAM [Suspect]
     Dosage: 60 TABLETS IN ONE DAY

REACTIONS (5)
  - Suicidal ideation [Unknown]
  - Deformity [Unknown]
  - Feeling abnormal [Unknown]
  - Weight increased [Unknown]
  - Intentional drug misuse [Unknown]
